FAERS Safety Report 9687309 (Version 4)
Quarter: 2014Q2

REPORT INFORMATION
  Report Type: Report from Study
  Country: GB (occurrence: GB)
  Receive Date: 20131114
  Receipt Date: 20140405
  Transmission Date: 20141212
  Serious: Yes (Other)
  Sender: FDA-Public Use
  Company Number: GB-ROCHE-1303462

PATIENT
  Age: 72 Year
  Sex: Male
  Weight: 84.8 kg

DRUGS (12)
  1. RANIBIZUMAB [Suspect]
     Indication: AGE-RELATED MACULAR DEGENERATION
     Route: 050
     Dates: start: 20120706
  2. RANIBIZUMAB [Suspect]
     Route: 050
     Dates: start: 20130503
  3. RANIBIZUMAB [Suspect]
     Route: 050
     Dates: start: 20130622
  4. RANIBIZUMAB [Suspect]
     Route: 050
     Dates: start: 20110606
  5. ASPIRINE [Concomitant]
     Route: 065
     Dates: start: 2012
  6. ASPIRINE [Concomitant]
     Route: 065
     Dates: start: 20130601, end: 201309
  7. ISOSORBIDE MONONITRATE [Concomitant]
     Route: 065
     Dates: start: 20120613, end: 20130625
  8. ISOSORBIDE MONONITRATE [Concomitant]
     Route: 065
     Dates: start: 20130601
  9. BISOPROLOL [Concomitant]
     Route: 065
     Dates: start: 20070321
  10. BISOPROLOL [Concomitant]
     Route: 065
     Dates: start: 20130601
  11. ATORVASTATIN [Concomitant]
     Route: 065
     Dates: start: 20120316
  12. ATORVASTATIN [Concomitant]
     Route: 065
     Dates: start: 20130531

REACTIONS (3)
  - Transient ischaemic attack [Recovered/Resolved]
  - Atrial fibrillation [Not Recovered/Not Resolved]
  - Type 2 diabetes mellitus [Not Recovered/Not Resolved]
